FAERS Safety Report 6885211-8 (Version None)
Quarter: 2010Q3

REPORT INFORMATION
  Report Type: 
  Country: None (occurrence: None)
  Receive Date: 20100727
  Receipt Date: 20100611
  Transmission Date: 20110219
  Serious: Yes (Hospitalization, Other)
  Sender: FDA-Public Use
  Company Number: US-BAXTER-2008BH001393

PATIENT
  Age: 65 Year
  Sex: Female
  Weight: 49 kg

DRUGS (30)
  1. HEPARIN SODIUM [Suspect]
     Indication: PERITONEAL DIALYSIS
     Route: 010
     Dates: start: 20070201, end: 20071101
  2. HEPARIN SODIUM [Suspect]
     Indication: HAEMODIALYSIS
     Route: 010
     Dates: start: 20070201, end: 20071101
  3. HEPARIN SODIUM [Suspect]
     Route: 033
     Dates: start: 20071101, end: 20080205
  4. HEPARIN SODIUM [Suspect]
     Route: 033
     Dates: start: 20071101, end: 20080205
  5. HEPARIN SODIUM [Suspect]
     Route: 065
     Dates: start: 20071101, end: 20080301
  6. HEPARIN SODIUM [Suspect]
     Route: 065
     Dates: start: 20071101, end: 20080301
  7. HEPARIN SODIUM [Suspect]
     Route: 010
     Dates: start: 20060301, end: 20071006
  8. HEPARIN SODIUM [Suspect]
     Route: 010
     Dates: start: 20060301, end: 20071006
  9. HEPARIN SODIUM [Suspect]
     Route: 040
     Dates: start: 20080122
  10. HEPARIN SODIUM [Suspect]
     Route: 040
     Dates: start: 20080122
  11. HEPARIN SODIUM [Suspect]
     Route: 010
     Dates: start: 20071004, end: 20071004
  12. HEPARIN SODIUM [Suspect]
     Route: 010
     Dates: start: 20071004, end: 20071004
  13. HEPARIN SODIUM [Suspect]
     Route: 042
     Dates: start: 20080222
  14. HEPARIN SODIUM [Suspect]
     Route: 042
     Dates: start: 20080222
  15. HEPARIN SODIUM [Suspect]
     Route: 010
     Dates: start: 20071005, end: 20071005
  16. HEPARIN SODIUM [Suspect]
     Route: 010
     Dates: start: 20071005, end: 20071005
  17. SENSIPAR [Concomitant]
     Indication: PRODUCT USED FOR UNKNOWN INDICATION
     Route: 065
  18. MULTI-VITAMINS [Concomitant]
     Indication: PRODUCT USED FOR UNKNOWN INDICATION
     Route: 065
  19. PROCHLORPERAZINE [Concomitant]
     Indication: PRODUCT USED FOR UNKNOWN INDICATION
     Route: 065
  20. RENAGEL [Concomitant]
     Indication: PRODUCT USED FOR UNKNOWN INDICATION
     Route: 065
  21. PHOSLO [Concomitant]
     Indication: PRODUCT USED FOR UNKNOWN INDICATION
     Route: 065
  22. LORAZEPAM [Concomitant]
     Indication: PRODUCT USED FOR UNKNOWN INDICATION
     Route: 065
  23. CLONIDINE HYDROCHLORIDE [Concomitant]
     Indication: PRODUCT USED FOR UNKNOWN INDICATION
     Route: 065
  24. DIANEAL [Concomitant]
     Indication: RENAL FAILURE
     Route: 033
  25. ANTIBIOTICS [Concomitant]
     Indication: PRODUCT USED FOR UNKNOWN INDICATION
     Route: 065
  26. ANTIBIOTICS [Concomitant]
     Route: 065
  27. MIDODRINE HYDROCHLORIDE [Concomitant]
     Indication: PRODUCT USED FOR UNKNOWN INDICATION
     Route: 065
  28. CORTICOSTEROID NOS [Concomitant]
     Indication: PRODUCT USED FOR UNKNOWN INDICATION
     Route: 065
  29. IRON [Concomitant]
     Indication: PRODUCT USED FOR UNKNOWN INDICATION
     Route: 065
  30. NOVEL ERYTHROPOIESIS STIMULATING PROTEIN [Concomitant]
     Indication: PRODUCT USED FOR UNKNOWN INDICATION
     Route: 065

REACTIONS (49)
  - ABDOMINAL PAIN [None]
  - ANAEMIA [None]
  - ANGIOEDEMA [None]
  - ARTERIOVENOUS FISTULA SITE COMPLICATION [None]
  - ASTHENIA [None]
  - AZOTAEMIA [None]
  - BACK PAIN [None]
  - BLOOD PRESSURE DECREASED [None]
  - BRADYCARDIA [None]
  - CHEST DISCOMFORT [None]
  - CHEST PAIN [None]
  - CONSTIPATION [None]
  - CONVULSION [None]
  - DEHYDRATION [None]
  - DEPRESSION [None]
  - DEVICE INTOLERANCE [None]
  - DIALYSIS DISEQUILIBRIUM SYNDROME [None]
  - DIARRHOEA [None]
  - DRUG HYPERSENSITIVITY [None]
  - DYSPNOEA [None]
  - FEELING HOT [None]
  - FLUID OVERLOAD [None]
  - GASTROOESOPHAGEAL REFLUX DISEASE [None]
  - HEADACHE [None]
  - HYPERPARATHYROIDISM SECONDARY [None]
  - HYPERTENSION [None]
  - HYPOAESTHESIA [None]
  - INFECTION [None]
  - INJECTION SITE PAIN [None]
  - LIPID METABOLISM DISORDER [None]
  - MALNUTRITION [None]
  - METABOLIC ACIDOSIS [None]
  - MUSCLE SPASMS [None]
  - NAUSEA [None]
  - OEDEMA PERIPHERAL [None]
  - PARAESTHESIA [None]
  - PERITONEAL DIALYSIS COMPLICATION [None]
  - PLEURAL EFFUSION [None]
  - RENAL FAILURE CHRONIC [None]
  - SKIN DISCOLOURATION [None]
  - SYNCOPE [None]
  - TACHYCARDIA [None]
  - URINARY TRACT INFECTION [None]
  - VISION BLURRED [None]
  - VOMITING [None]
  - VULVOVAGINITIS [None]
  - WEIGHT INCREASED [None]
  - WHEEZING [None]
  - YAWNING [None]
